FAERS Safety Report 10153536 (Version 1)
Quarter: 2014Q2

REPORT INFORMATION
  Report Type: Spontaneous
  Country: US (occurrence: US)
  Receive Date: 20140505
  Receipt Date: 20140505
  Transmission Date: 20141212
  Serious: No
  Sender: FDA-Public Use
  Company Number: US-009507513-1405USA000326

PATIENT
  Sex: Female

DRUGS (1)
  1. IMPLANON [Suspect]
     Dosage: 1 ROD FOR 3 YEARS
     Route: 059
     Dates: start: 20110311

REACTIONS (3)
  - Menstrual disorder [Unknown]
  - Unintended pregnancy [Unknown]
  - Incorrect drug administration duration [Unknown]
